FAERS Safety Report 14174892 (Version 1)
Quarter: 2017Q4

REPORT INFORMATION
  Report Type: Spontaneous
  Country: US (occurrence: US)
  Receive Date: 20171109
  Receipt Date: 20171109
  Transmission Date: 20180321
  Serious: Yes (Other)
  Sender: FDA-Public Use
  Company Number: US-AMGEN-USASP2017136763

PATIENT
  Age: 28 Year
  Sex: Female

DRUGS (4)
  1. PRENATAL VITAMINS [Concomitant]
     Active Substance: VITAMINS
     Dosage: UNK UNK, QD
     Dates: start: 20170509
  2. NPLATE [Suspect]
     Active Substance: ROMIPLOSTIM
     Indication: IMMUNE THROMBOCYTOPENIC PURPURA
     Dosage: 198 MUG, UNK
     Route: 065
     Dates: start: 20170907
  3. PREDNISONE. [Concomitant]
     Active Substance: PREDNISONE
     Indication: IMMUNE THROMBOCYTOPENIC PURPURA
     Dosage: UNK UNK, QD
     Route: 048
     Dates: start: 20170528
  4. IMUNOGLOBULIN [Concomitant]
     Dosage: 150 G, QWK
     Route: 042
     Dates: start: 20170527

REACTIONS (4)
  - Bloody discharge [Unknown]
  - Gingival bleeding [Unknown]
  - Maternal exposure during pregnancy [Not Recovered/Not Resolved]
  - Platelet count decreased [Unknown]
